FAERS Safety Report 20994698 (Version 1)
Quarter: 2022Q2

REPORT INFORMATION
  Report Type: Spontaneous
  Country: US (occurrence: None)
  Receive Date: 20220622
  Receipt Date: 20220622
  Transmission Date: 20220721
  Serious: No
  Sender: FDA-Public Use
  Company Number: None

PATIENT

DRUGS (4)
  1. HEPARIN [Suspect]
     Active Substance: HEPARIN SODIUM
     Dosage: OTHER STRENGTH : 25000 UNITS/500 ML;?
  2. PROPOFOL [Suspect]
     Active Substance: PROPOFOL
  3. PHENYLEPHRINE [Suspect]
     Active Substance: PHENYLEPHRINE HYDROCHLORIDE
  4. DEVICE [Suspect]
     Active Substance: DEVICE

REACTIONS (3)
  - Device delivery system issue [None]
  - Wrong technique in product usage process [None]
  - Blood pressure increased [None]
